FAERS Safety Report 9088196 (Version 1)
Quarter: 2013Q1

REPORT INFORMATION
  Report Type: Report from Study
  Country: CA (occurrence: CA)
  Receive Date: 20130201
  Receipt Date: 20130201
  Transmission Date: 20140127
  Serious: Yes (Other)
  Sender: FDA-Public Use
  Company Number: CA-ROCHE-1077608

PATIENT
  Sex: Female
  Weight: 44.95 kg

DRUGS (4)
  1. XELODA [Suspect]
     Indication: BREAST CANCER
     Route: 048
     Dates: start: 20120511, end: 201205
  2. ASPIRIN [Concomitant]
     Route: 065
  3. ZANTAC [Concomitant]
  4. VESICARE [Concomitant]

REACTIONS (2)
  - Drug ineffective [Unknown]
  - Disease progression [Unknown]
